FAERS Safety Report 7432131-6 (Version None)
Quarter: 2011Q2

REPORT INFORMATION
  Report Type: 
  Country: None (occurrence: None)
  Receive Date: 20110422
  Receipt Date: 20110419
  Transmission Date: 20111010
  Serious: Yes (Hospitalization)
  Sender: FDA-Public Use
  Company Number: US-B.I. PHARMACEUTICALS,INC./RIDGEFIELD-2011-BP-01395BP

PATIENT
  Age: 85 Year
  Sex: Female
  Weight: 45.36 kg

DRUGS (6)
  1. ALDACTONE [Concomitant]
     Dosage: 50 MG
     Dates: start: 20070101
  2. LIPITOR [Concomitant]
     Dosage: 10 MG
     Dates: start: 20070101
  3. PRADAXA [Suspect]
     Indication: ATRIAL FIBRILLATION
     Dosage: 300 MG
     Dates: start: 20101230, end: 20110110
  4. SOTALOL [Concomitant]
     Dosage: 160 MG
     Dates: start: 20070101
  5. ASPIRIN [Concomitant]
     Dosage: 81 MG
     Dates: start: 20070101
  6. CARDIZEM CD [Concomitant]
     Dosage: 180 MG
     Dates: start: 20070101

REACTIONS (4)
  - HAEMOPTYSIS [None]
  - INTERNATIONAL NORMALISED RATIO INCREASED [None]
  - HAEMATURIA [None]
  - ACTIVATED PARTIAL THROMBOPLASTIN TIME PROLONGED [None]
